FAERS Safety Report 9777775 (Version 2)
Quarter: 2014Q1

REPORT INFORMATION
  Report Type: Spontaneous
  Country: US (occurrence: US)
  Receive Date: 20131223
  Receipt Date: 20140121
  Transmission Date: 20141002
  Serious: Yes (Death)
  Sender: FDA-Public Use
  Company Number: US-AMGEN-USASP2013089080

PATIENT
  Age: 83 Year
  Sex: Female

DRUGS (6)
  1. PROLIA [Suspect]
     Indication: OSTEOPOROSIS POSTMENOPAUSAL
     Route: 065
  2. DARVOCET                           /00220901/ [Concomitant]
  3. LIDOCAINE [Concomitant]
  4. TRAMADOL [Concomitant]
  5. XANAX [Concomitant]
  6. OXYBUTYNIN [Concomitant]

REACTIONS (1)
  - Hernia obstructive [Fatal]
